FAERS Safety Report 7555351-9 (Version None)
Quarter: 2011Q2

REPORT INFORMATION
  Report Type: 
  Country: None (occurrence: None)
  Receive Date: 20110617
  Receipt Date: 20110602
  Transmission Date: 20111010
  Serious: No
  Sender: FDA-Public Use
  Company Number: US-B.I. PHARMACEUTICALS,INC./RIDGEFIELD-2011-BP-10554BP

PATIENT
  Age: 70 Year
  Sex: Male

DRUGS (8)
  1. CARTIA XT [Concomitant]
     Dosage: 120 MG
  2. PRIMIDONE [Concomitant]
     Dosage: 1000 MG
  3. LISINOPRIL [Concomitant]
     Dosage: 20 MG
  4. PRADAXA [Suspect]
     Indication: ATRIAL FIBRILLATION
     Dosage: 300 MG
     Route: 048
     Dates: start: 20110401
  5. FENOFIBRATE [Concomitant]
     Dosage: 160 MG
  6. CARTIA XT [Concomitant]
     Dosage: 240 MG
  7. DIGOXIN [Concomitant]
     Dosage: 0.25 MG
  8. SIMVASTATIN [Concomitant]
     Dosage: 40 MG

REACTIONS (2)
  - DIZZINESS [None]
  - NAUSEA [None]
